FAERS Safety Report 5335994-3 (Version None)
Quarter: 2007Q1

REPORT INFORMATION
  Report Type: 
  Country: None (occurrence: None)
  Receive Date: 20070302
  Receipt Date: 20070108
  Transmission Date: 20070707
  Serious: No
  Sender: FDA-Public Use
  Company Number: PHEH2007US00742

PATIENT
  Sex: Female

DRUGS (1)
  1. ENABLEX [Suspect]
     Dosage: 15 MG

REACTIONS (6)
  - BLISTER [None]
  - CONTUSION [None]
  - EXCORIATION [None]
  - PRURITUS [None]
  - RASH [None]
  - URTICARIA [None]
